FAERS Safety Report 9546493 (Version 1)
Quarter: 2013Q3

REPORT INFORMATION
  Report Type: Spontaneous
  Country: US (occurrence: US)
  Receive Date: 20130923
  Receipt Date: 20130923
  Transmission Date: 20140515
  Serious: No
  Sender: FDA-Public Use
  Company Number: US-ALLERGAN-1214477US

PATIENT
  Age: 69 Year
  Sex: Male

DRUGS (10)
  1. ACUVAIL [Suspect]
     Indication: PROCEDURAL PAIN
     Dosage: 1 DROP TO RIGHT EYE AS NEEDED
     Route: 047
     Dates: start: 201208
  2. EFFEXOR XR [Suspect]
     Indication: DEPRESSION
     Dosage: 150 MG, QD
     Route: 048
     Dates: start: 201208
  3. LUMIGAN [Concomitant]
     Indication: INTRAOCULAR PRESSURE INCREASED
     Dosage: 1 GTT, QHS
     Route: 047
  4. ASA [Concomitant]
     Indication: PROPHYLAXIS
     Dosage: 1 DF, QD
     Route: 048
  5. FISH OIL [Concomitant]
     Indication: NUTRITIONAL SUPPLEMENTATION
     Dosage: UNK, QD
     Route: 048
  6. LASIX [Concomitant]
     Indication: PRODUCT USED FOR UNKNOWN INDICATION
     Dosage: 1 DF, QD
     Route: 048
  7. LOSARTAN [Concomitant]
     Indication: HYPERTENSION
     Dosage: 1 DF, QD
     Route: 048
  8. ZETIA [Concomitant]
     Indication: PRODUCT USED FOR UNKNOWN INDICATION
     Dosage: 1 DF, QD
     Route: 048
  9. PROTONIX [Concomitant]
     Indication: GASTROOESOPHAGEAL REFLUX DISEASE
     Dosage: 1 DF, QD
     Route: 048
  10. LIPITOR [Concomitant]
     Indication: BLOOD CHOLESTEROL INCREASED
     Dosage: 1 DF, QD
     Route: 048

REACTIONS (2)
  - Nausea [Unknown]
  - Dizziness [Unknown]
